FAERS Safety Report 8473812 (Version 2)
Quarter: 2014Q3

REPORT INFORMATION
  Report Type: Spontaneous
  Country: DE (occurrence: CA)
  Receive Date: 20120323
  Receipt Date: 20140728
  Transmission Date: 20150326
  Serious: Yes (Congenital Anomaly)
  Sender: FDA-Public Use
  Company Number: DE-RANBAXY-2012US-54112

PATIENT
  Weight: 2.5 kg

DRUGS (2)
  1. ONDANSETRON [Suspect]
     Active Substance: ONDANSETRON
     Indication: MATERNAL USE OF ILLICIT DRUGS
     Dosage: UNK
     Route: 064
  2. DOXYLAMINE [Concomitant]
     Active Substance: DOXYLAMINE
     Indication: MATERNAL USE OF ILLICIT DRUGS
     Dosage: UNK
     Route: 064

REACTIONS (5)
  - Atrial septal defect [Unknown]
  - Ventricular septal defect [Unknown]
  - Foetal exposure during pregnancy [Unknown]
  - Ankyloglossia acquired [Unknown]
  - Jaundice [Unknown]
